FAERS Safety Report 11739992 (Version 1)
Quarter: 2015Q4

REPORT INFORMATION
  Report Type: Report from Study
  Country: ZA (occurrence: ZA)
  Receive Date: 20151113
  Receipt Date: 20151113
  Transmission Date: 20160304
  Serious: Yes (Hospitalization, Other)
  Sender: FDA-Public Use
  Company Number: ZA-ABBVIE-15P-143-1500172-00

PATIENT
  Sex: Male
  Weight: 1.85 kg

DRUGS (5)
  1. ZIDOVUDINE. [Concomitant]
     Active Substance: ZIDOVUDINE
     Dosage: TOTAL DAILY DOSE 1.4 ML
     Route: 048
     Dates: start: 20071016, end: 20071018
  2. ZIDOVUDINE. [Concomitant]
     Active Substance: ZIDOVUDINE
     Indication: PROPHYLAXIS AGAINST HIV INFECTION
     Dosage: TOTAL DAILY DOSE 1 ML
     Route: 048
     Dates: start: 20071015, end: 20071015
  3. ZIDOVUDINE. [Concomitant]
     Active Substance: ZIDOVUDINE
     Dosage: TOTL DAILY DOSE 1.6 ML
     Route: 048
     Dates: start: 20071019, end: 20071030
  4. RITONAVIR. [Suspect]
     Active Substance: RITONAVIR
     Indication: MATERNAL EXPOSURE TIMING UNSPECIFIED
     Route: 064
  5. ATAZANAVIR SULFATE [Concomitant]
     Active Substance: ATAZANAVIR SULFATE
     Indication: MATERNAL EXPOSURE TIMING UNSPECIFIED
     Route: 064

REACTIONS (3)
  - Premature baby [Unknown]
  - Foetal exposure during pregnancy [Unknown]
  - Jaundice [Recovered/Resolved]

NARRATIVE: CASE EVENT DATE: 20071015
